FAERS Safety Report 25929978 (Version 2)
Quarter: 2025Q4

REPORT INFORMATION
  Report Type: Spontaneous
  Country: US (occurrence: US)
  Receive Date: 20251016
  Receipt Date: 20251020
  Transmission Date: 20260117
  Serious: Yes (Other)
  Sender: PFIZER
  Company Number: US-MLMSERVICE-20251006-PI670041-00101-1

PATIENT
  Age: 6 Decade
  Sex: Female

DRUGS (2)
  1. GEMCITABINE HYDROCHLORIDE [Suspect]
     Active Substance: GEMCITABINE HYDROCHLORIDE
     Indication: Transitional cell cancer of the renal pelvis and ureter
     Dosage: 1000 MG/M2, CYCLIC (ON DAY 1 AND DAY 8 EVERY 3 WEEKS; RECEIVED FOUR CYCLES)
  2. CISPLATIN [Suspect]
     Active Substance: CISPLATIN
     Indication: Transitional cell cancer of the renal pelvis and ureter
     Dosage: 35 MG/M2, CYCLIC (SPLIT-DOSE 35 MG/M2 ON DAY 1 AND DAY 8 EVERY 3 WEEKS; RECEIVED FOUR CYCLES)

REACTIONS (4)
  - Neuropathy peripheral [Unknown]
  - Gastrointestinal disorder [Unknown]
  - Fatigue [Unknown]
  - Off label use [Unknown]
